FAERS Safety Report 8118475-3 (Version None)
Quarter: 2012Q1

REPORT INFORMATION
  Report Type: 
  Country: None (occurrence: None)
  Receive Date: 20120207
  Receipt Date: 20120126
  Transmission Date: 20120608
  Serious: Yes (Other)
  Sender: FDA-Public Use
  Company Number: CA-JNJFOC-20120200840

PATIENT
  Sex: Female
  Weight: 79.38 kg

DRUGS (7)
  1. GABAPENTIN [Concomitant]
  2. SYNTHROID [Concomitant]
  3. PANTOPRAZOLE [Concomitant]
  4. PAXIL [Concomitant]
  5. MORPHINE [Concomitant]
     Route: 062
  6. REMICADE [Suspect]
     Indication: CROHN'S DISEASE
     Route: 042
     Dates: start: 20120126
  7. REMICADE [Suspect]
     Route: 042
     Dates: start: 20080101, end: 20090101

REACTIONS (1)
  - OVARIAN CANCER [None]
